FAERS Safety Report 4426047-7 (Version None)
Quarter: 2004Q3

REPORT INFORMATION
  Report Type: 
  Country: None (occurrence: None)
  Receive Date: 20040810
  Receipt Date: 20040802
  Transmission Date: 20050211
  Serious: Yes (Other)
  Sender: FDA-Public Use
  Company Number: K200401079

PATIENT
  Age: 70 Year
  Sex: Male

DRUGS (5)
  1. ALTACE [Suspect]
     Indication: HYPERTENSION
     Dosage: 1.25 MG, QD, ORAL
     Route: 048
     Dates: start: 20040629
  2. HYDROCHLOROTHIAZIDE [Concomitant]
  3. ALPHAGAN (BRIMONIDINE TARTRATE) DROP [Concomitant]
  4. BETOPTIC (BETAXOLOL HYDROCHLORIDE) DROP [Concomitant]
  5. ALLOPURINOL [Concomitant]

REACTIONS (2)
  - CONDITION AGGRAVATED [None]
  - GOUT [None]
